FAERS Safety Report 7307832-0 (Version None)
Quarter: 2011Q1

REPORT INFORMATION
  Report Type: 
  Country: None (occurrence: None)
  Receive Date: 20110223
  Receipt Date: 20110210
  Transmission Date: 20110831
  Serious: Yes (Other)
  Sender: FDA-Public Use
  Company Number: US-ELI_LILLY_AND_COMPANY-US201102003253

PATIENT
  Sex: Male

DRUGS (8)
  1. HUMULIN R [Suspect]
     Dosage: 15 U, OTHER
  2. HUMULIN R [Suspect]
     Dosage: 15 U, OTHER
  3. HUMULIN R [Suspect]
     Indication: TYPE 1 DIABETES MELLITUS
     Dosage: 25 U, EACH MORNING
  4. HUMULIN R [Suspect]
     Dosage: 15 U, OTHER
  5. HUMULIN R [Suspect]
     Dosage: 25 U, EACH MORNING
  6. NOVOLIN 70/30 [Concomitant]
  7. HUMULIN R [Suspect]
     Dosage: 15 U, OTHER
  8. LANTUS [Concomitant]

REACTIONS (12)
  - ABDOMINAL PAIN [None]
  - LOSS OF CONSCIOUSNESS [None]
  - VOMITING [None]
  - DRUG EFFECT DECREASED [None]
  - NAUSEA [None]
  - ABDOMINAL PAIN UPPER [None]
  - BLOOD GLUCOSE DECREASED [None]
  - ERUCTATION [None]
  - DRUG HYPERSENSITIVITY [None]
  - BLOOD GLUCOSE INCREASED [None]
  - INSULIN RESISTANCE [None]
  - VISUAL ACUITY REDUCED [None]
